FAERS Safety Report 9688008 (Version 1)
Quarter: 2013Q4

REPORT INFORMATION
  Report Type: Spontaneous
  Country: CA (occurrence: CA)
  Receive Date: 20131114
  Receipt Date: 20131114
  Transmission Date: 20140711
  Serious: Yes (Death, Hospitalization, Other)
  Sender: FDA-Public Use
  Company Number: CA-ASTELLAS-2013US011829

PATIENT
  Sex: Male

DRUGS (1)
  1. ADVAGRAF [Suspect]
     Indication: PRODUCT USED FOR UNKNOWN INDICATION
     Dosage: UNK
     Route: 048

REACTIONS (6)
  - Drug ineffective [Unknown]
  - Death [Fatal]
  - Investigation [Unknown]
  - Pneumonia [Unknown]
  - Clostridium difficile infection [Unknown]
  - Kidney transplant rejection [Unknown]
